FAERS Safety Report 5331532-X (Version None)
Quarter: 2007Q2

REPORT INFORMATION
  Report Type: 
  Country: None (occurrence: None)
  Receive Date: 20070522
  Receipt Date: 20070515
  Transmission Date: 20071010
  Serious: Yes (Other)
  Sender: FDA-Public Use
  Company Number: US-PFIZER INC-2007015901

PATIENT
  Sex: Female
  Weight: 101.2 kg

DRUGS (10)
  1. NEURONTIN [Suspect]
     Route: 048
     Dates: start: 19981008, end: 20050801
  2. CELEBREX [Suspect]
     Route: 048
  3. DURAGESIC-100 [Concomitant]
  4. EFFEXOR XR [Concomitant]
  5. VASOTEC [Concomitant]
  6. TOPROL-XL [Concomitant]
  7. LORTAB [Concomitant]
  8. PAMELOR [Concomitant]
  9. ESTRATEST [Concomitant]
  10. XANAX [Concomitant]

REACTIONS (11)
  - ANAEMIA [None]
  - BLOOD CREATININE INCREASED [None]
  - BLOOD MAGNESIUM INCREASED [None]
  - BLOOD UREA INCREASED [None]
  - CONVULSION [None]
  - HYPERKALAEMIA [None]
  - HYPOCALCAEMIA [None]
  - HYPOTENSION [None]
  - MUSCLE TWITCHING [None]
  - RENAL FAILURE ACUTE [None]
  - WHITE BLOOD CELL COUNT INCREASED [None]
